FAERS Safety Report 17583182 (Version 1)
Quarter: 2020Q1

REPORT INFORMATION
  Report Type: Other
  Country: GB (occurrence: GB)
  Receive Date: 20200326
  Receipt Date: 20200326
  Transmission Date: 20200409
  Serious: Yes (Hospitalization, Congenital Anomaly)
  Sender: FDA-Public Use
  Company Number: GB-CELLTRION INC.-2020GB020799

PATIENT

DRUGS (2)
  1. PERTUZUMAB. [Concomitant]
     Active Substance: PERTUZUMAB
     Dosage: UNK
  2. TRASTUZUMAB (UNKNOWN) [Suspect]
     Active Substance: TRASTUZUMAB
     Dosage: 328MLS
     Dates: start: 20191003, end: 20191003

REACTIONS (8)
  - Back pain [Unknown]
  - Feeling cold [Unknown]
  - Malaise [Unknown]
  - Heart rate increased [Unknown]
  - Retching [Unknown]
  - Dyspnoea [Unknown]
  - Blood pressure increased [Unknown]
  - Chills [Unknown]

NARRATIVE: CASE EVENT DATE: 20191003
